FAERS Safety Report 4803475-9 (Version None)
Quarter: 2005Q4

REPORT INFORMATION
  Report Type: 
  Country: None (occurrence: None)
  Receive Date: 20051019
  Receipt Date: 20051006
  Transmission Date: 20060501
  Serious: Yes (Other)
  Sender: FDA-Public Use
  Company Number: 2005PK01888

PATIENT

DRUGS (2)
  1. SEROQUEL [Suspect]
  2. ANAFRANIL [Suspect]

REACTIONS (1)
  - SEROTONIN SYNDROME [None]
